FAERS Safety Report 6202182-8 (Version None)
Quarter: 2009Q2

REPORT INFORMATION
  Report Type: 
  Country: None (occurrence: None)
  Receive Date: 20090526
  Receipt Date: 20090519
  Transmission Date: 20091009
  Serious: Yes (Hospitalization)
  Sender: FDA-Public Use
  Company Number: US-PFIZER INC-2005100050

PATIENT
  Sex: Female
  Weight: 57.38 kg

DRUGS (12)
  1. MARAVIROC [Suspect]
     Indication: HIV INFECTION
     Dosage: UNK
     Route: 048
     Dates: start: 20050517, end: 20050908
  2. VIDEX [Concomitant]
     Route: 048
     Dates: start: 20030311, end: 20050710
  3. ZIAGEN [Concomitant]
     Route: 048
     Dates: start: 20050517, end: 20050710
  4. EPIVIR [Concomitant]
     Route: 048
     Dates: start: 20030311, end: 20050710
  5. VIREAD [Concomitant]
     Route: 048
     Dates: start: 20030311, end: 20050710
  6. FUZEON [Concomitant]
     Route: 058
     Dates: start: 20050517, end: 20050706
  7. ALBUTEROL [Concomitant]
     Indication: ASTHMA
     Route: 055
     Dates: start: 19890101
  8. NEUPOGEN [Concomitant]
     Indication: NEUTROPENIA
     Route: 058
     Dates: start: 20050418
  9. DIFLUCAN [Concomitant]
     Route: 048
     Dates: start: 20050325
  10. DIPHENHYDRAMINE HCL [Concomitant]
     Indication: SEASONAL ALLERGY
     Route: 048
     Dates: start: 20040415
  11. ZITHROMAX [Concomitant]
     Route: 048
     Dates: start: 20050503
  12. ZYRTEC [Concomitant]
     Indication: SEASONAL ALLERGY
     Route: 048
     Dates: start: 20050510

REACTIONS (2)
  - MOVEMENT DISORDER [None]
  - PAIN [None]
